FAERS Safety Report 5621129-6 (Version None)
Quarter: 2008Q1

REPORT INFORMATION
  Report Type: 
  Country: None (occurrence: None)
  Receive Date: 20080114
  Receipt Date: 20070207
  Transmission Date: 20080703
  Serious: Yes (Other)
  Sender: FDA-Public Use
  Company Number: A03200701151

PATIENT
  Sex: Female

DRUGS (4)
  1. PLAVIX [Suspect]
     Indication: CAROTID ARTERY STENT INSERTION
     Dosage: 425-500 MG LOADING DOSE BEFORE THE CAROTID STENT PROCEDURE - ORAL
     Route: 048
  2. PLAVIX [Suspect]
     Indication: NERVOUS SYSTEM DISORDER
     Dosage: 425-500 MG LOADING DOSE BEFORE THE CAROTID STENT PROCEDURE - ORAL
     Route: 048
  3. PLAVIX [Suspect]
     Indication: CAROTID ARTERY STENT INSERTION
  4. PLAVIX [Suspect]
     Indication: NERVOUS SYSTEM DISORDER

REACTIONS (3)
  - HAEMORRHAGE [None]
  - IIIRD NERVE PARALYSIS [None]
  - OVERDOSE [None]
